FAERS Safety Report 5944590-6 (Version None)
Quarter: 2008Q4

REPORT INFORMATION
  Report Type: 
  Country: None (occurrence: None)
  Receive Date: 20081105
  Receipt Date: 20081024
  Transmission Date: 20090506
  Serious: Yes (Hospitalization)
  Sender: FDA-Public Use
  Company Number: 2008-179659-NL

PATIENT
  Age: 36 Year
  Sex: Male

DRUGS (9)
  1. MIRTAZAPINE [Suspect]
     Indication: DEPRESSION
     Dosage: 15 MG/ML ORAL
     Route: 048
     Dates: start: 20080125
  2. LEVOTHYROXINE SODIUM [Suspect]
     Indication: HYPOTHYROIDISM
     Dosage: 75 UG ORAL
     Route: 048
     Dates: start: 20071224
  3. ALFUZOSIN HCL [Suspect]
     Indication: BENIGN PROSTATIC HYPERPLASIA
     Dosage: 10 MG ORAL
     Route: 048
     Dates: start: 20080207, end: 20080401
  4. HYDROXYZINE [Suspect]
     Indication: ANXIETY
     Dosage: 0.5 DF
     Dates: start: 20080326, end: 20080401
  5. CLOZAPINE [Suspect]
     Indication: SCHIZOPHRENIA
     Dosage: DF ORAL
     Route: 048
     Dates: start: 20080326
  6. CLONAZEPAM [Suspect]
     Indication: EPILEPSY
     Dosage: 8 MG/1 MG ORAL
     Route: 048
     Dates: start: 20080326
  7. AMOXICILLIN [Suspect]
     Indication: INFECTION
     Dosage: 2 G ORAL
     Route: 048
     Dates: start: 20080328, end: 20080403
  8. ACETAMINOPHEN [Suspect]
     Dosage: 4 G PRN ORAL
     Route: 048
     Dates: start: 20080328
  9. TROPATEPINE HYDROCHLORIDE [Suspect]
     Indication: PARKINSON'S DISEASE
     Dosage: 10 MG BID ORAL
     Route: 048
     Dates: start: 20080225

REACTIONS (3)
  - DEPRESSION [None]
  - EOSINOPHILIA [None]
  - TONSILLITIS [None]
